FAERS Safety Report 9704240 (Version 1)
Quarter: 2013Q4

REPORT INFORMATION
  Report Type: Spontaneous
  Country: US (occurrence: US)
  Receive Date: 20131122
  Receipt Date: 20131122
  Transmission Date: 20140711
  Serious: No
  Sender: FDA-Public Use
  Company Number: US-MYLANLABS-2012S1021237

PATIENT
  Age: 71 Year
  Sex: Male
  Weight: 76.2 kg

DRUGS (3)
  1. AMLODIPINE BESYLATE TABLETS [Suspect]
     Indication: BLOOD PRESSURE INCREASED
     Route: 048
     Dates: start: 201201
  2. ASA [Concomitant]
     Route: 048
  3. LISINOPRIL [Concomitant]
     Route: 048

REACTIONS (1)
  - Throat irritation [Recovered/Resolved]
